FAERS Safety Report 6076850-5 (Version None)
Quarter: 2009Q1

REPORT INFORMATION
  Report Type: 
  Country: None (occurrence: None)
  Receive Date: 20090213
  Receipt Date: 20090202
  Transmission Date: 20090719
  Serious: Yes (Other)
  Sender: FDA-Public Use
  Company Number: US-ELI_LILLY_AND_COMPANY-US200902001014

PATIENT
  Age: 42 Year
  Sex: Female

DRUGS (1)
  1. CYMBALTA [Suspect]
     Dosage: 60 MG, UNK

REACTIONS (3)
  - NAUSEA [None]
  - PYELONEPHRITIS [None]
  - VOMITING [None]
